FAERS Safety Report 22309807 (Version 1)
Quarter: 2023Q2

REPORT INFORMATION
  Report Type: Spontaneous
  Country: US (occurrence: None)
  Receive Date: 20230510
  Receipt Date: 20230510
  Transmission Date: 20230721
  Serious: Yes (Life-Threatening, Hospitalization)
  Sender: FDA-Public Use
  Company Number: None

PATIENT
  Age: 68 Year
  Sex: Male
  Weight: 78.75 kg

DRUGS (10)
  1. FLUOROURACIL [Suspect]
     Active Substance: FLUOROURACIL
     Dosage: OTHER QUANTITY : 1 RUBBED ON SCALP;?FREQUENCY : TWICE A DAY;?
     Route: 061
     Dates: start: 20230419, end: 20230420
  2. CALCIPOTRIENE [Suspect]
     Active Substance: CALCIPOTRIENE
     Indication: Precancerous skin lesion
     Dosage: OTHER QUANTITY : 1 RUBBED ON SCALP;?FREQUENCY : TWICE A DAY;?
     Route: 061
     Dates: start: 20230419, end: 20230420
  3. CALCIPOTRIENE [Suspect]
     Active Substance: CALCIPOTRIENE
     Indication: Skin disorder
  4. ALBUTEROL SULFATE [Concomitant]
     Active Substance: ALBUTEROL SULFATE
  5. ACTUATION AEROSOL INHALER [Concomitant]
  6. STIOLTO RESPIMAT [Concomitant]
  7. GLUCOSAMINE SULFATE [Concomitant]
     Active Substance: GLUCOSAMINE SULFATE
  8. omega-3 ethyl esters [Concomitant]
  9. therapeutic multivitamin [Concomitant]
  10. LOVAZA [Concomitant]
     Active Substance: OMEGA-3-ACID ETHYL ESTERS

REACTIONS (5)
  - Abdominal pain [None]
  - Therapy cessation [None]
  - Visual field defect [None]
  - Haemorrhagic stroke [None]
  - Blood pressure increased [None]

NARRATIVE: CASE EVENT DATE: 20230420
